FAERS Safety Report 4992419-5 (Version None)
Quarter: 2006Q1

REPORT INFORMATION
  Report Type: 
  Country: None (occurrence: None)
  Receive Date: 20060315
  Receipt Date: 20050329
  Transmission Date: 20060701
  Serious: Yes (Other)
  Sender: FDA-Public Use
  Company Number: USA050394525

PATIENT
  Sex: Female

DRUGS (2)
  1. GEMZAR [Suspect]
     Indication: BREAST CANCER METASTATIC
  2. PACLITAXEL [Concomitant]

REACTIONS (1)
  - ANAPHYLACTIC REACTION [None]
